FAERS Safety Report 5765242-1 (Version None)
Quarter: 2008Q2

REPORT INFORMATION
  Report Type: 
  Country: None (occurrence: None)
  Receive Date: 20080611
  Receipt Date: 20080603
  Transmission Date: 20081010
  Serious: Yes (Other)
  Sender: FDA-Public Use
  Company Number: US-BAYER-200812217BCC

PATIENT
  Sex: Female

DRUGS (3)
  1. ASPIRIN [Suspect]
     Indication: CEREBROVASCULAR ACCIDENT PROPHYLAXIS
     Dosage: TOTAL DAILY DOSE: 81 MG  UNIT DOSE: 81 MG
     Route: 048
     Dates: start: 19600101
  2. ATENOLOL [Concomitant]
  3. VITAMIN B [Concomitant]

REACTIONS (10)
  - CATARACT [None]
  - CYST [None]
  - CYSTITIS [None]
  - DRY EYE [None]
  - DRY MOUTH [None]
  - EYE PAIN [None]
  - EYELID PTOSIS [None]
  - LACRIMATION INCREASED [None]
  - MYASTHENIA GRAVIS [None]
  - URINARY TRACT INFECTION [None]
